FAERS Safety Report 25141408 (Version 1)
Quarter: 2025Q1

REPORT INFORMATION
  Report Type: Spontaneous
  Country: US (occurrence: US)
  Receive Date: 20250331
  Receipt Date: 20250331
  Transmission Date: 20250408
  Serious: Yes (Other)
  Sender: BRISTOL-MYERS SQUIBB COMPANY
  Company Number: US-BRISTOL-MYERS SQUIBB COMPANY-2025-045450

PATIENT
  Age: 66 Year
  Sex: Male
  Weight: 93.44 kg

DRUGS (1)
  1. ELIQUIS [Suspect]
     Active Substance: APIXABAN
     Indication: Deep vein thrombosis
     Route: 048

REACTIONS (3)
  - Laryngeal cancer [Unknown]
  - Odynophagia [Unknown]
  - Constipation [Unknown]

NARRATIVE: CASE EVENT DATE: 20241101
